FAERS Safety Report 8441466-X (Version None)
Quarter: 2012Q2

REPORT INFORMATION
  Report Type: 
  Country: None (occurrence: None)
  Receive Date: 20120615
  Receipt Date: 20120612
  Transmission Date: 20120825
  Serious: Yes (Hospitalization)
  Sender: FDA-Public Use
  Company Number: US-GILEAD-2012-0056563

PATIENT
  Sex: Female

DRUGS (3)
  1. TYVASO [Concomitant]
  2. REVATIO [Concomitant]
  3. LETAIRIS [Suspect]
     Indication: PRODUCT USED FOR UNKNOWN INDICATION
     Dosage: 10 MG, UNK
     Route: 048
     Dates: start: 20090114

REACTIONS (2)
  - LUNG TRANSPLANT [None]
  - RENAL TRANSPLANT [None]
